FAERS Safety Report 6912596-6 (Version None)
Quarter: 2010Q3

REPORT INFORMATION
  Report Type: 
  Country: None (occurrence: None)
  Receive Date: 20100806
  Receipt Date: 20080828
  Transmission Date: 20110219
  Serious: No
  Sender: FDA-Public Use
  Company Number: US-PFIZER INC-2008072463

PATIENT
  Sex: Female
  Weight: 54.09 kg

DRUGS (9)
  1. DETROL LA [Suspect]
     Indication: URINARY INCONTINENCE
     Route: 048
     Dates: start: 20080606
  2. RITALIN [Concomitant]
  3. BUSPAR [Concomitant]
  4. KLONOPIN [Concomitant]
  5. INDERAL [Concomitant]
  6. ZOCOR [Concomitant]
  7. XALATAN [Concomitant]
  8. VITAMIN TAB [Concomitant]
  9. LEXAPRO [Concomitant]

REACTIONS (1)
  - DIPLOPIA [None]
